FAERS Safety Report 6401468-1 (Version None)
Quarter: 2009Q4

REPORT INFORMATION
  Report Type: 
  Country: None (occurrence: None)
  Receive Date: 20091009
  Receipt Date: 20090928
  Transmission Date: 20100525
  Serious: Yes (Death, Congenital Anomaly, Other)
  Sender: FDA-Public Use
  Company Number: RENA-1000550

PATIENT
  Sex: Female
  Weight: 1 kg

DRUGS (4)
  1. RENAGEL [Suspect]
     Indication: HYPERPHOSPHATAEMIA
     Dosage: 1.6 G, TID, UNKNOWN, 0.8 G, TID, UNKNOWN
     Dates: start: 20090101
  2. RENAGEL [Suspect]
     Indication: HYPERPHOSPHATAEMIA
     Dosage: 1.6 G, TID, UNKNOWN, 0.8 G, TID, UNKNOWN
     Dates: start: 20090629
  3. CAPTOPRIL [Concomitant]
  4. ANTIHYPERTENSIVE (UNSPECIFIED) [Concomitant]

REACTIONS (5)
  - DEATH NEONATAL [None]
  - FEEDING DISORDER NEONATAL [None]
  - MATERNAL DRUGS AFFECTING FOETUS [None]
  - OROPHARYNGEAL PLAQUE [None]
  - PREMATURE BABY [None]
